FAERS Safety Report 16451712 (Version 2)
Quarter: 2020Q3

REPORT INFORMATION
  Report Type: Report from Study
  Country: US (occurrence: US)
  Receive Date: 20190619
  Receipt Date: 20190624
  Transmission Date: 20201104
  Serious: Yes (Death)
  Sender: FDA-Public Use
  Company Number: US-PFIZER INC-2019249958

PATIENT
  Age: 43 Year
  Sex: Male
  Weight: 51.9 kg

DRUGS (2)
  1. AVELUMAB [Suspect]
     Active Substance: AVELUMAB
     Indication: NEOPLASM
     Dosage: UNK MG, CYCLIC (DAY 1 AND DAY 15 OF EACH 28 DAY CYCLE)
     Route: 042
     Dates: start: 20190604, end: 20190604
  2. TALAZOPARIB. [Suspect]
     Active Substance: TALAZOPARIB
     Indication: NEOPLASM
     Dosage: 1 MG, 1X/DAY
     Route: 048
     Dates: start: 20190604, end: 20190609

REACTIONS (2)
  - Acute kidney injury [Fatal]
  - Seizure [Fatal]

NARRATIVE: CASE EVENT DATE: 20190609
